FAERS Safety Report 26049271 (Version 1)
Quarter: 2025Q4

REPORT INFORMATION
  Report Type: Spontaneous
  Country: EU (occurrence: EU)
  Receive Date: 20251115
  Receipt Date: 20251115
  Transmission Date: 20260118
  Serious: Yes (Hospitalization)
  Sender: MACLEODS
  Company Number: EU-MACLEODS PHARMA-MAC2025056323

PATIENT

DRUGS (2)
  1. LIDOCAINE [Suspect]
     Active Substance: LIDOCAINE
     Indication: Procedural pain
     Route: 065
  2. PRILOCAINE [Suspect]
     Active Substance: PRILOCAINE
     Indication: Procedural pain
     Route: 065

REACTIONS (5)
  - Local anaesthetic systemic toxicity [Unknown]
  - Toxicity to various agents [Recovered/Resolved]
  - Palpitations [Recovered/Resolved]
  - Syncope [Recovered/Resolved]
  - Overdose [Unknown]
